FAERS Safety Report 9257326 (Version 1)
Quarter: 2013Q2

REPORT INFORMATION
  Report Type: Spontaneous
  Country: US (occurrence: US)
  Receive Date: 20130426
  Receipt Date: 20130426
  Transmission Date: 20140414
  Serious: Yes (Hospitalization)
  Sender: FDA-Public Use
  Company Number: US-BAYER-2013-051463

PATIENT
  Age: 27 Year
  Sex: Female
  Weight: 66.21 kg

DRUGS (6)
  1. YAZ [Suspect]
     Indication: POLYCYSTIC OVARIES
  2. YAZ [Suspect]
     Indication: ORAL CONTRACEPTION
  3. SYNTHROID [Concomitant]
     Indication: HYPOTHYROIDISM
     Dosage: 75 MCG DAILY
  4. SPIRONOLACTONE [Concomitant]
     Indication: ACNE
     Dosage: 50 MG, TWICE DAILY
  5. MULTIVITAMIN [Concomitant]
     Dosage: DAILY
  6. CLINDAMYCIN [Concomitant]
     Dosage: UNK
     Dates: start: 20120320

REACTIONS (3)
  - Pulmonary embolism [Recovering/Resolving]
  - Deep vein thrombosis [Recovered/Resolved]
  - Pelvic venous thrombosis [Recovered/Resolved]
